FAERS Safety Report 7190493-1 (Version None)
Quarter: 2010Q4

REPORT INFORMATION
  Report Type: 
  Country: None (occurrence: None)
  Receive Date: 20101221
  Receipt Date: 20101221
  Transmission Date: 20110411
  Serious: Yes (Hospitalization)
  Sender: FDA-Public Use
  Company Number: None

PATIENT
  Sex: Female
  Weight: 52.1637 kg

DRUGS (1)
  1. SENSIPAR [Suspect]
     Dosage: 60 MG DAILY PO
     Route: 048
     Dates: start: 20060401, end: 20100701

REACTIONS (5)
  - BRAIN NEOPLASM MALIGNANT [None]
  - OFF LABEL USE [None]
  - PANCREATIC NEOPLASM [None]
  - PARATHYROID TUMOUR [None]
  - RENAL NEOPLASM [None]
